FAERS Safety Report 8990031 (Version 1)
Quarter: 2012Q4

REPORT INFORMATION
  Report Type: 
  Country: BR (occurrence: BR)
  Receive Date: 20121228
  Receipt Date: 20121228
  Transmission Date: 20130627
  Serious: Yes (Other)
  Sender: FDA-Public Use
  Company Number: BR-AMGEN-BRASP2012083517

PATIENT
  Age: 23 Year
  Sex: Male
  Weight: 52 kg

DRUGS (4)
  1. ENBREL [Suspect]
     Indication: ANKYLOSING SPONDYLITIS
     Dosage: 50 mg,  once weekly
     Route: 058
     Dates: start: 201011, end: 20121205
  2. METHOTREXATE [Concomitant]
     Dosage: UNK UNK, UNK
  3. SULFASALAZINE [Concomitant]
     Dosage: UNK UNK, UNK
  4. NIMESULIDE [Concomitant]
     Dosage: UNK UNK, UNK

REACTIONS (1)
  - Bone cancer [Unknown]
